FAERS Safety Report 14395137 (Version 1)
Quarter: 2018Q1

REPORT INFORMATION
  Report Type: Report from Study
  Country: JP (occurrence: JP)
  Receive Date: 20180116
  Receipt Date: 20180116
  Transmission Date: 20180509
  Serious: Yes (Hospitalization)
  Sender: FDA-Public Use
  Company Number: JP-PFIZER INC-2017536858

PATIENT
  Age: 85 Year
  Sex: Male
  Weight: 52 kg

DRUGS (16)
  1. METHYCOBAL [Concomitant]
     Active Substance: METHYLCOBALAMIN
  2. DENOTAS [Concomitant]
     Active Substance: CALCIUM CARBONATE\CHOLECALCIFEROL\MAGNESIUM CARBONATE
  3. LYRICA [Concomitant]
     Active Substance: PREGABALIN
  4. DEXALTIN [Concomitant]
     Active Substance: DEXAMETHASONE
  5. MAGMITT [Concomitant]
     Active Substance: MAGNESIUM OXIDE
  6. XELJANZ [Suspect]
     Active Substance: TOFACITINIB CITRATE
     Indication: RHEUMATOID ARTHRITIS
     Dosage: 5 MG, 2X/DAY
     Route: 048
     Dates: start: 20170124, end: 20170825
  7. PREDNISOLONE. [Suspect]
     Active Substance: PREDNISOLONE
     Indication: RHEUMATOID ARTHRITIS
     Dosage: 2.5 MG, DAILY
     Route: 048
     Dates: start: 20130516
  8. SELBEX [Concomitant]
     Active Substance: TEPRENONE
  9. BENZALIN /00036201/ [Concomitant]
     Active Substance: NITRAZEPAM
  10. ANPLAG [Concomitant]
     Active Substance: SARPOGRELATE
  11. MOHRUS L [Concomitant]
     Active Substance: KETOPROFEN
  12. CALONAL [Concomitant]
     Active Substance: ACETAMINOPHEN
  13. AMLODIPINE [Concomitant]
     Active Substance: AMLODIPINE BESYLATE
  14. RABEPRAZOLE [Concomitant]
     Active Substance: RABEPRAZOLE
  15. CELECOX [Concomitant]
     Active Substance: CELECOXIB
  16. BAKTAR [Concomitant]
     Active Substance: SULFAMETHOXAZOLE\TRIMETHOPRIM

REACTIONS (3)
  - Interstitial lung disease [Recovered/Resolved with Sequelae]
  - Pneumonia bacterial [Recovering/Resolving]
  - Large intestine perforation [Recovering/Resolving]

NARRATIVE: CASE EVENT DATE: 20170825
